FAERS Safety Report 17067447 (Version 3)
Quarter: 2020Q1

REPORT INFORMATION
  Report Type: Spontaneous
  Country: US (occurrence: US)
  Receive Date: 20191122
  Receipt Date: 20200127
  Transmission Date: 20200409
  Serious: Yes (Hospitalization, Other)
  Sender: FDA-Public Use
  Company Number: US-ACTELION-A-NJ2019-198609

PATIENT
  Age: 5 Month
  Sex: Male
  Weight: 1.45 kg

DRUGS (13)
  1. TRACLEER [Suspect]
     Active Substance: BOSENTAN
     Dosage: 62.5 MG
     Route: 048
     Dates: start: 20191223
  2. LANSOPRAZOLE. [Concomitant]
     Active Substance: LANSOPRAZOLE
     Dosage: 2.5 ML, QD
  3. TRACLEER [Suspect]
     Active Substance: BOSENTAN
     Indication: PULMONARY HYPERTENSION
     Dosage: 62.5 MG
     Route: 048
     Dates: start: 20190924
  4. TRACLEER [Suspect]
     Active Substance: BOSENTAN
     Dosage: MIX 1/4 TAB (62.5MG TAB) IN 5 ML WATER
     Route: 048
     Dates: start: 20191111
  5. PULMICORT TURBUHALER [Concomitant]
     Active Substance: BUDESONIDE
     Dosage: INHALE ONE VIAL, BID
  6. LASIX [Concomitant]
     Active Substance: FUROSEMIDE
     Dosage: 0.5 MG, BID
  7. ALBUTEROL SULFATE. [Concomitant]
     Active Substance: ALBUTEROL SULFATE
     Indication: WHEEZING
     Dosage: 1.25MG/3 ML/Q6HRS/PRN
  8. FUROSEMIDE. [Concomitant]
     Active Substance: FUROSEMIDE
     Dosage: 0.5 ML, BID
  9. METHADONE [Concomitant]
     Active Substance: METHADONE HYDROCHLORIDE
     Dosage: 0.3 MG QD
     Dates: start: 20191223
  10. REVATIO [Concomitant]
     Active Substance: SILDENAFIL CITRATE
     Indication: PULMONARY HYPERTENSION
     Dosage: 5.6 MG (0.56ML), Q6HRS
     Route: 048
  11. OXYGEN. [Concomitant]
     Active Substance: OXYGEN
  12. CATAPRES [Concomitant]
     Active Substance: CLONIDINE HYDROCHLORIDE
     Dosage: 0.1MG/ML, TID
     Route: 048
  13. NEXIUM [Concomitant]
     Active Substance: ESOMEPRAZOLE MAGNESIUM
     Dosage: 5 MG PACKET, QD BEFORE BREAKFAST

REACTIONS (17)
  - Cough [Recovered/Resolved]
  - Dyspnoea [Recovered/Resolved]
  - Right atrial enlargement [Unknown]
  - Pyrexia [Unknown]
  - Acute respiratory failure [Recovered/Resolved]
  - PCO2 increased [Unknown]
  - Vocal cord paralysis [Unknown]
  - Pneumonia bacterial [Unknown]
  - Chronic respiratory disease [Unknown]
  - Hypercapnia [Unknown]
  - Pneumonia viral [Unknown]
  - Hypoxia [Unknown]
  - Rhinovirus infection [Recovered/Resolved]
  - Pulmonary hypertension [Unknown]
  - Respiratory syncytial virus bronchiolitis [Recovered/Resolved]
  - Right ventricular hypertrophy [Unknown]
  - Blood pH decreased [Unknown]

NARRATIVE: CASE EVENT DATE: 20191123
